FAERS Safety Report 20671754 (Version 1)
Quarter: 2022Q2

REPORT INFORMATION
  Report Type: Spontaneous
  Country: ES (occurrence: ES)
  Receive Date: 20220405
  Receipt Date: 20220405
  Transmission Date: 20220720
  Serious: No
  Sender: FDA-Public Use
  Company Number: ES-ALKEM LABORATORIES LIMITED-ES-ALKEM-2022-01539

PATIENT
  Age: 2 Year
  Sex: Male

DRUGS (2)
  1. SIROLIMUS [Suspect]
     Active Substance: SIROLIMUS
     Indication: Product used for unknown indication
     Dosage: 0.5 MILLIGRAM PER KG
     Route: 065
     Dates: start: 201801
  2. SIROLIMUS [Suspect]
     Active Substance: SIROLIMUS
     Dosage: 0.13 MILLIGRAM PER KG
     Route: 065
     Dates: end: 201912

REACTIONS (3)
  - Conjunctivitis [Unknown]
  - Upper respiratory tract infection [Unknown]
  - Drug level decreased [Unknown]
